FAERS Safety Report 17657622 (Version 1)
Quarter: 2020Q2

REPORT INFORMATION
  Report Type: Report from Study
  Country: None (occurrence: BR)
  Receive Date: 20200411
  Receipt Date: 20200411
  Transmission Date: 20200713
  Serious: Yes (Other)
  Sender: FDA-Public Use
  Company Number: BR-ABBVIE-20K-020-3357531-00

PATIENT
  Age: 48 Year
  Sex: Female
  Weight: 78 kg

DRUGS (3)
  1. FOLIC ACID. [Concomitant]
     Active Substance: FOLIC ACID
     Indication: ANKYLOSING SPONDYLITIS
     Route: 048
  2. HUMIRA [Suspect]
     Active Substance: ADALIMUMAB
     Indication: ANKYLOSING SPONDYLITIS
     Route: 058
     Dates: start: 20170926, end: 202002
  3. METHOTREXATE. [Concomitant]
     Active Substance: METHOTREXATE
     Indication: ANKYLOSING SPONDYLITIS
     Dosage: 3 TABLETS AT MORNING AND 3 AT NIGHT
     Route: 048

REACTIONS (22)
  - Dyspnoea [Unknown]
  - Muscle spasms [Recovered/Resolved]
  - Pain [Unknown]
  - Umbilical discharge [Not Recovered/Not Resolved]
  - Lymphoma [Unknown]
  - Fear of injection [Unknown]
  - Umbilical hernia [Unknown]
  - Drug hypersensitivity [Not Recovered/Not Resolved]
  - Malaise [Unknown]
  - Gait inability [Unknown]
  - Respiratory rate decreased [Unknown]
  - Joint stiffness [Unknown]
  - Pruritus [Not Recovered/Not Resolved]
  - Hypertension [Not Recovered/Not Resolved]
  - Blood pressure decreased [Unknown]
  - Omphalitis [Unknown]
  - Feeling hot [Not Recovered/Not Resolved]
  - Pain in extremity [Unknown]
  - Erythema [Not Recovered/Not Resolved]
  - Dizziness [Unknown]
  - Hypersensitivity [Unknown]
  - Nodule [Unknown]

NARRATIVE: CASE EVENT DATE: 2018
